FAERS Safety Report 5496402-5 (Version None)
Quarter: 2007Q4

REPORT INFORMATION
  Report Type: 
  Country: None (occurrence: None)
  Receive Date: 20071025
  Receipt Date: 20070404
  Transmission Date: 20080405
  Serious: No
  Sender: FDA-Public Use
  Company Number: A0645989A

PATIENT
  Age: 73 Year
  Sex: Female

DRUGS (3)
  1. ADVAIR DISKUS 100/50 [Suspect]
     Indication: ASTHMA
     Dosage: 1PUFF TWICE PER DAY
     Route: 055
  2. LISINOPRIL [Concomitant]
  3. HYDROCHLOROTHIAZIDE [Concomitant]

REACTIONS (2)
  - DYSPHONIA [None]
  - PHARMACEUTICAL PRODUCT COMPLAINT [None]
